FAERS Safety Report 17965468 (Version 1)
Quarter: 2020Q3

REPORT INFORMATION
  Report Type: Report from Study
  Country: US (occurrence: US)
  Receive Date: 20200701
  Receipt Date: 20200701
  Transmission Date: 20201103
  Serious: Yes (Other)
  Sender: FDA-Public Use
  Company Number: US-TAIHO ONCOLOGY  INC-EU-2020-02223

PATIENT
  Age: 62 Year
  Sex: Female
  Weight: 57.2 kg

DRUGS (6)
  1. LONSURF [Suspect]
     Active Substance: TIPIRACIL HYDROCHLORIDE\TRIFLURIDINE
     Indication: COLORECTAL CANCER METASTATIC
  2. VITAMIN D3 [Concomitant]
     Active Substance: CHOLECALCIFEROL
  3. POTASSIUM CHLORIDE. [Concomitant]
     Active Substance: POTASSIUM CHLORIDE
  4. OXYCODONE?ACETAMINOPHEN [Concomitant]
     Active Substance: ACETAMINOPHEN\OXYCODONE HYDROCHLORIDE
  5. LONSURF [Suspect]
     Active Substance: TIPIRACIL HYDROCHLORIDE\TRIFLURIDINE
     Indication: RECTAL CANCER
     Dosage: UNKNOWN CYCLE
     Route: 048
     Dates: start: 20200525
  6. HAIR, SKIN AND NAILS TABLET [Concomitant]

REACTIONS (3)
  - Thrombosis [Unknown]
  - Disease progression [Unknown]
  - Cytopenia [Unknown]

NARRATIVE: CASE EVENT DATE: 20200620
